FAERS Safety Report 10616600 (Version 1)
Quarter: 2014Q4

REPORT INFORMATION
  Report Type: Spontaneous
  Country: US (occurrence: None)
  Receive Date: 20141126
  Receipt Date: 20141126
  Transmission Date: 20150529
  Serious: Yes (Disabling)
  Sender: FDA-Public Use
  Company Number: None

PATIENT
  Age: 57 Year
  Sex: Female
  Weight: 72.58 kg

DRUGS (2)
  1. SEROQUEL XR [Suspect]
     Active Substance: QUETIAPINE FUMARATE
     Indication: BIPOLAR II DISORDER
     Dosage: 1  ONCE DAILY TAKEN BY MOUTH
     Route: 048
  2. BUPROPION [Suspect]
     Active Substance: BUPROPION
     Indication: MAJOR DEPRESSION
     Dosage: 1 TAB TWICE DAILY TAKEN BY MOUTH
     Route: 048

REACTIONS (2)
  - Feeling abnormal [None]
  - Quality of life decreased [None]

NARRATIVE: CASE EVENT DATE: 20141024
